FAERS Safety Report 8719948 (Version 2)
Quarter: 2012Q4

REPORT INFORMATION
  Report Type: 
  Country: US (occurrence: US)
  Receive Date: 20120813
  Receipt Date: 20121018
  Transmission Date: 20130627
  Serious: Yes (Other)
  Sender: FDA-Public Use
  Company Number: US-BAYER-2012-080834

PATIENT
  Age: 22 Year
  Sex: Female
  Weight: 52.15 kg

DRUGS (6)
  1. YASMIN [Suspect]
     Indication: ACNE
     Dosage: UNK
     Dates: start: 20090903, end: 20101115
  2. FLUTICASONE [Concomitant]
     Dosage: UNK
     Dates: start: 20090728, end: 20090810
  3. CIPROFLOXACIN [Concomitant]
     Dosage: UNK
     Dates: start: 20120125, end: 20120130
  4. DOXYCYCLINE [Concomitant]
     Dosage: UNK
     Dates: start: 20090427, end: 20090816
  5. ASTHMA MEDICATIONS/INHALER [Concomitant]
     Indication: ASTHMA
     Dosage: UNK
     Dates: start: 2001
  6. IBUPROFEN [Concomitant]
     Dosage: Less than 5 times annually

REACTIONS (8)
  - Nephrolithiasis [None]
  - Kidney infection [None]
  - Cystitis [None]
  - Injury [None]
  - Pain [None]
  - Anxiety [None]
  - Anhedonia [None]
  - Fear [None]
